FAERS Safety Report 21861996 (Version 5)
Quarter: 2023Q2

REPORT INFORMATION
  Report Type: Spontaneous
  Country: KR (occurrence: KR)
  Receive Date: 20230113
  Receipt Date: 20230414
  Transmission Date: 20230721
  Serious: Yes (Hospitalization, Other)
  Sender: FDA-Public Use
  Company Number: KR-009507513-2209KOR003033

PATIENT
  Age: 40 Year
  Sex: Female
  Weight: 57.7 kg

DRUGS (13)
  1. PEMBROLIZUMAB [Suspect]
     Active Substance: PEMBROLIZUMAB
     Indication: Endometrial cancer
     Dosage: 200 MILLIGRAM
     Route: 042
     Dates: start: 20220310, end: 20220310
  2. PEMBROLIZUMAB [Suspect]
     Active Substance: PEMBROLIZUMAB
     Dosage: 200 MILLIGRAM
     Route: 042
     Dates: start: 20220411, end: 20220411
  3. PEMBROLIZUMAB [Suspect]
     Active Substance: PEMBROLIZUMAB
     Dosage: 200 MILLIGRAM
     Route: 042
     Dates: start: 20220509, end: 20220509
  4. PEMBROLIZUMAB [Suspect]
     Active Substance: PEMBROLIZUMAB
     Dosage: 200 MILLIGRAM
     Route: 042
     Dates: start: 20220607, end: 20220607
  5. PEMBROLIZUMAB [Suspect]
     Active Substance: PEMBROLIZUMAB
     Dosage: 200 MILLIGRAM
     Route: 042
     Dates: start: 20220628, end: 20220628
  6. PEMBROLIZUMAB [Suspect]
     Active Substance: PEMBROLIZUMAB
     Dosage: 200 MILLIGRAM
     Route: 042
     Dates: start: 20220730, end: 20220730
  7. LENVATINIB MESYLATE [Suspect]
     Active Substance: LENVATINIB MESYLATE
     Indication: Endometrial cancer
     Dosage: 20 MILLIGRAM
     Route: 048
     Dates: start: 20220310, end: 20220624
  8. LENVATINIB MESYLATE [Suspect]
     Active Substance: LENVATINIB MESYLATE
     Dosage: 14 MILLIGRAM
     Route: 048
     Dates: start: 20220625, end: 20220627
  9. LENVATINIB MESYLATE [Suspect]
     Active Substance: LENVATINIB MESYLATE
     Dosage: 8 MILLIGRAM
     Route: 048
     Dates: start: 20220628, end: 20220702
  10. SYNTROXINE [Concomitant]
     Indication: Hypothyroidism
     Dosage: 1 DOSAGE FORM, QD
     Route: 048
  11. MEROPENEM [Concomitant]
     Active Substance: MEROPENEM
     Indication: Pyelonephritis acute
     Dosage: 1000 MILLIGRAM, QD
     Route: 042
     Dates: start: 20220617, end: 20220620
  12. VANCOCIN CP [Concomitant]
     Indication: Pyelonephritis acute
     Dosage: 0.9 GRAM, QD
     Route: 042
     Dates: start: 20220617, end: 20220620
  13. NORVASC [Concomitant]
     Active Substance: AMLODIPINE BESYLATE
     Indication: Hypertension
     Dosage: 5 MILLIGRAM, QD
     Route: 048
     Dates: start: 20220607, end: 20220625

REACTIONS (9)
  - Pyelonephritis acute [Recovering/Resolving]
  - Urethral stent insertion [Unknown]
  - Palmar-plantar erythrodysaesthesia syndrome [Recovering/Resolving]
  - Hypertension [Recovering/Resolving]
  - Nausea [Recovering/Resolving]
  - Inappropriate schedule of product administration [Unknown]
  - Inappropriate schedule of product administration [Unknown]
  - Inappropriate schedule of product administration [Unknown]
  - Inappropriate schedule of product administration [Unknown]

NARRATIVE: CASE EVENT DATE: 20220101
